FAERS Safety Report 7361260-0 (Version None)
Quarter: 2011Q1

REPORT INFORMATION
  Report Type: 
  Country: None (occurrence: None)
  Receive Date: 20110318
  Receipt Date: 20110311
  Transmission Date: 20110831
  Serious: Yes (Death, Hospitalization, Other)
  Sender: FDA-Public Use
  Company Number: PHFR2011GB01711

PATIENT
  Sex: Male

DRUGS (5)
  1. AMISULPRIDE [Suspect]
     Dosage: UNK DF, UNK
  2. CLOZARIL [Suspect]
     Indication: SCHIZOPHRENIA
     Dosage: UNK MG, UNK
     Route: 048
     Dates: start: 20041220
  3. CLOZARIL [Suspect]
     Dosage: 300 MG, UNK
     Route: 048
  4. CLOZARIL [Suspect]
     Dosage: 200 MG, UNK
     Route: 048
  5. CLOZARIL [Suspect]
     Dosage: UNK MG, UNK
     Route: 048

REACTIONS (17)
  - PNEUMONIA [None]
  - DRUG INTOLERANCE [None]
  - GAIT DISTURBANCE [None]
  - FALL [None]
  - MALAISE [None]
  - SEDATION [None]
  - BRONCHOPNEUMONIA [None]
  - PARKINSON'S DISEASE [None]
  - GASTRIC ULCER [None]
  - LOWER RESPIRATORY TRACT INFECTION [None]
  - DRUG INTERACTION [None]
  - PULMONARY EMBOLISM [None]
  - GASTRIC HAEMORRHAGE [None]
  - URINARY TRACT INFECTION [None]
  - BEDRIDDEN [None]
  - ANTIPSYCHOTIC DRUG LEVEL ABOVE THERAPEUTIC [None]
  - UPPER LIMB FRACTURE [None]
